FAERS Safety Report 9398600 (Version 2)
Quarter: 2013Q3

REPORT INFORMATION
  Report Type: Spontaneous
  Country: AU (occurrence: AU)
  Receive Date: 20130712
  Receipt Date: 20130726
  Transmission Date: 20140515
  Serious: Yes (Life-Threatening, Hospitalization)
  Sender: FDA-Public Use
  Company Number: AU-ASTRAZENECA-2013SE42763

PATIENT
  Age: 428 Month
  Sex: Female
  Weight: 24.9 kg

DRUGS (5)
  1. ZOLADEX [Suspect]
     Indication: BREAST CANCER
     Route: 058
     Dates: start: 20120318
  2. ZOLADEX [Suspect]
     Indication: BREAST CANCER
     Route: 058
  3. LETROZOLE [Concomitant]
     Indication: BREAST CANCER
     Route: 048
     Dates: start: 201212
  4. VENLAFAXINE HYDROCHLORIDE [Concomitant]
     Dates: start: 20121215
  5. ANTIBIOTICS [Concomitant]

REACTIONS (10)
  - Headache [Unknown]
  - Thirst [Unknown]
  - Vomiting [Unknown]
  - Vision blurred [Unknown]
  - Meningitis [Unknown]
  - Nausea [Unknown]
  - Chills [Unknown]
  - Dizziness [Unknown]
  - Rash generalised [Unknown]
  - Anxiety [Unknown]
